FAERS Safety Report 5543248-5 (Version None)
Quarter: 2007Q4

REPORT INFORMATION
  Report Type: 
  Country: None (occurrence: None)
  Receive Date: 20071210
  Receipt Date: 20071022
  Transmission Date: 20080405
  Serious: No
  Sender: FDA-Public Use
  Company Number: US-AMGEN-KDL247968

PATIENT
  Sex: Female
  Weight: 64.9 kg

DRUGS (6)
  1. ENBREL [Suspect]
     Indication: RHEUMATOID ARTHRITIS
     Route: 058
     Dates: start: 20070913, end: 20071006
  2. AVALIDE [Concomitant]
  3. SINGULAIR [Concomitant]
  4. NEXIUM [Concomitant]
  5. PREMARIN [Concomitant]
  6. LIPITOR [Concomitant]

REACTIONS (1)
  - URINARY TRACT INFECTION [None]
